FAERS Safety Report 19053716 (Version 1)
Quarter: 2021Q1

REPORT INFORMATION
  Report Type: Spontaneous
  Country: FR (occurrence: FR)
  Receive Date: 20210324
  Receipt Date: 20210324
  Transmission Date: 20210420
  Serious: Yes (Other)
  Sender: FDA-Public Use
  Company Number: FR-EISAI MEDICAL RESEARCH-EC-2021-089787

PATIENT
  Age: 9 Year
  Sex: Male

DRUGS (4)
  1. INOVELON [Suspect]
     Active Substance: RUFINAMIDE
     Indication: LENNOX-GASTAUT SYNDROME
     Route: 048
  2. LAMICTAL [Concomitant]
     Active Substance: LAMOTRIGINE
     Indication: EPILEPSY
     Route: 047
  3. INOVELON [Suspect]
     Active Substance: RUFINAMIDE
     Indication: EPILEPSY
     Route: 048
  4. MICROPAKINE [Concomitant]
     Active Substance: VALPROATE SODIUM
     Indication: EPILEPSY
     Dosage: DOSE AND FREQUENCY UNKNOWN
     Route: 065

REACTIONS (4)
  - Psychomotor hyperactivity [Unknown]
  - Fatigue [Unknown]
  - Crying [Unknown]
  - Aggression [Unknown]
